FAERS Safety Report 15619447 (Version 2)
Quarter: 2018Q4

REPORT INFORMATION
  Report Type: Report from Study
  Country: None (occurrence: US)
  Receive Date: 20181115
  Receipt Date: 20181122
  Transmission Date: 20190205
  Serious: Yes (Life-Threatening, Hospitalization, Other)
  Sender: FDA-Public Use
  Company Number: US-ABBVIE-18K-163-2549960-00

PATIENT
  Age: 75 Year
  Sex: Female
  Weight: 77.18 kg

DRUGS (7)
  1. KEFLEX [Suspect]
     Active Substance: CEPHALEXIN
     Indication: SEPSIS
     Route: 065
     Dates: start: 20181109
  2. PREDNISONE. [Suspect]
     Active Substance: PREDNISONE
     Indication: PRODUCT USED FOR UNKNOWN INDICATION
     Route: 065
     Dates: start: 201807
  3. METOPROLOL. [Concomitant]
     Active Substance: METOPROLOL
     Indication: HYPERTENSION
  4. HUMIRA [Suspect]
     Active Substance: ADALIMUMAB
     Indication: RHEUMATOID ARTHRITIS
     Route: 058
     Dates: start: 201807, end: 201809
  5. HUMIRA [Suspect]
     Active Substance: ADALIMUMAB
     Indication: CROHN^S DISEASE
     Route: 058
     Dates: start: 201809, end: 20181103
  6. OMEPRAZOLE. [Concomitant]
     Active Substance: OMEPRAZOLE
     Indication: GASTROOESOPHAGEAL REFLUX DISEASE
  7. SYNTHROID [Concomitant]
     Active Substance: LEVOTHYROXINE SODIUM
     Indication: HYPOTHYROIDISM

REACTIONS (13)
  - Heart rate increased [Recovered/Resolved]
  - Swelling [Unknown]
  - Diarrhoea [Not Recovered/Not Resolved]
  - Tremor [Recovered/Resolved]
  - Vitamin D decreased [Not Recovered/Not Resolved]
  - Viral infection [Recovered/Resolved]
  - Diarrhoea [Recovered/Resolved]
  - Asthenia [Not Recovered/Not Resolved]
  - Weight increased [Not Recovered/Not Resolved]
  - Gait disturbance [Recovered/Resolved]
  - Sepsis [Recovered/Resolved]
  - Hypertension [Not Recovered/Not Resolved]
  - Blood calcium decreased [Not Recovered/Not Resolved]

NARRATIVE: CASE EVENT DATE: 201807
